FAERS Safety Report 9182686 (Version 1)
Quarter: 2012Q4

REPORT INFORMATION
  Report Type: 
  Country: NZ (occurrence: NZ)
  Receive Date: 20121030
  Receipt Date: 20121030
  Transmission Date: 20130627
  Serious: Yes (Other)
  Sender: FDA-Public Use
  Company Number: PHHY2012NZ097133

PATIENT
  Sex: Male

DRUGS (2)
  1. CLOZARIL [Suspect]
     Indication: SCHIZOPHRENIA
     Dates: start: 20110909
  2. CLOZARIL [Suspect]
     Dates: start: 20121001

REACTIONS (3)
  - Choking [Unknown]
  - Dyspnoea [Unknown]
  - Myocardial infarction [Unknown]
